FAERS Safety Report 6561487-1 (Version None)
Quarter: 2010Q1

REPORT INFORMATION
  Report Type: 
  Country: None (occurrence: None)
  Receive Date: 20100130
  Receipt Date: 20091015
  Transmission Date: 20100710
  Serious: Yes (Other)
  Sender: FDA-Public Use
  Company Number: US-ABBOTT-09P-163-0603654-00

PATIENT
  Sex: Female

DRUGS (1)
  1. HUMIRA [Suspect]
     Indication: PSORIASIS
     Route: 058
     Dates: start: 20081201, end: 20090916

REACTIONS (3)
  - ARTHRALGIA [None]
  - LUPUS-LIKE SYNDROME [None]
  - PSORIATIC ARTHROPATHY [None]
